FAERS Safety Report 23994588 (Version 3)
Quarter: 2024Q4

REPORT INFORMATION
  Report Type: Report from Study
  Country: US (occurrence: US)
  Receive Date: 20240620
  Receipt Date: 20241028
  Transmission Date: 20250114
  Serious: Yes (Other)
  Sender: ABBVIE
  Company Number: US-ABBVIE-5807016

PATIENT
  Age: 77 Year
  Sex: Male

DRUGS (1)
  1. IMBRUVICA [Suspect]
     Active Substance: IBRUTINIB
     Indication: B-cell small lymphocytic lymphoma
     Route: 048
     Dates: start: 202208

REACTIONS (6)
  - Ankle fracture [Unknown]
  - Tooth disorder [Unknown]
  - Hypersensitivity [Unknown]
  - Productive cough [Unknown]
  - Nasopharyngitis [Unknown]
  - Road traffic accident [Unknown]

NARRATIVE: CASE EVENT DATE: 20240501
